FAERS Safety Report 13760828 (Version 1)
Quarter: 2017Q3

REPORT INFORMATION
  Report Type: Report from Study
  Country: US (occurrence: BR)
  Receive Date: 20170717
  Receipt Date: 20170717
  Transmission Date: 20171127
  Serious: Yes (Death)
  Sender: FDA-Public Use
  Company Number: US-SUNOVION-2017SUN003064

PATIENT
  Sex: Female
  Weight: 72 kg

DRUGS (1)
  1. INDACATEROL [Suspect]
     Active Substance: INDACATEROL
     Indication: FATIGUE
     Dosage: UNK, BID
     Route: 055

REACTIONS (7)
  - Asphyxia [Fatal]
  - Lung disorder [Fatal]
  - Dyspnoea [Fatal]
  - Fatigue [Fatal]
  - Inappropriate schedule of drug administration [Unknown]
  - Cardiac disorder [Fatal]
  - Product use in unapproved indication [Unknown]
